FAERS Safety Report 14934499 (Version 1)
Quarter: 2018Q2

REPORT INFORMATION
  Report Type: Report from Study
  Country: US (occurrence: US)
  Receive Date: 20180524
  Receipt Date: 20180524
  Transmission Date: 20180711
  Serious: Yes (Other)
  Sender: FDA-Public Use
  Company Number: US-REGENERON PHARMACEUTICALS, INC.-2018-24139

PATIENT

DRUGS (4)
  1. EYLEA [Suspect]
     Active Substance: AFLIBERCEPT
     Indication: RETINAL VEIN OCCLUSION
  2. PANTOPRAZOLE [Concomitant]
     Active Substance: PANTOPRAZOLE
     Indication: PRODUCT USED FOR UNKNOWN INDICATION
     Dosage: 1 OR TWICE A WEEK FOR STOMACH GAS WHICH OCCURS AFTER EATING AND GOING TO BED, NOT FOR REFLUX
  3. EYLEA [Suspect]
     Active Substance: AFLIBERCEPT
     Indication: MACULAR OEDEMA
     Dosage: ONE DOSE,RIGHT EYE PHYSICIAN PLANNED TO GIVE EYLEA MONTHLY FOR 3 MONTHS AND THEN ONCE EVERY 2 MONTHS
     Route: 031
     Dates: start: 20180410, end: 20180410
  4. TAMSULOSIN [Concomitant]
     Active Substance: TAMSULOSIN
     Indication: PRODUCT USED FOR UNKNOWN INDICATION
     Dosage: UNK

REACTIONS (7)
  - Insomnia [Unknown]
  - Constipation [Unknown]
  - Weight decreased [Unknown]
  - Asthenia [Unknown]
  - Pain in extremity [Unknown]
  - Memory impairment [Unknown]
  - Eye haemorrhage [Recovered/Resolved]
